FAERS Safety Report 7771873-X (Version None)
Quarter: 2011Q3

REPORT INFORMATION
  Report Type: 
  Country: None (occurrence: None)
  Receive Date: 20110922
  Receipt Date: 20100820
  Transmission Date: 20111222
  Serious: No
  Sender: FDA-Public Use
  Company Number: US-ASTRAZENECA-2010SE39445

PATIENT
  Sex: Male
  Weight: 63.5 kg

DRUGS (3)
  1. SEROQUEL [Suspect]
     Route: 048
  2. SYNTHROID [Concomitant]
     Indication: HYPOTHYROIDISM
  3. FLORAZAPAM [Concomitant]
     Indication: STRESS

REACTIONS (4)
  - INCORRECT DOSE ADMINISTERED [None]
  - HYPERSENSITIVITY [None]
  - LETHARGY [None]
  - COMA [None]
